FAERS Safety Report 5384425-6 (Version None)
Quarter: 2007Q3

REPORT INFORMATION
  Report Type: 
  Country: None (occurrence: None)
  Receive Date: 20070711
  Receipt Date: 20070702
  Transmission Date: 20080115
  Serious: Yes (Hospitalization, Other)
  Sender: FDA-Public Use
  Company Number: US-ASTRAZENECA-2007UW15778

PATIENT
  Age: 388 Month
  Sex: Female
  Weight: 85.9 kg

DRUGS (4)
  1. SEROQUEL [Suspect]
     Indication: SCHIZOPHRENIA
     Dosage: 200 MG - 600 MG
     Route: 048
     Dates: start: 20000801, end: 20060501
  2. SEROQUEL [Suspect]
     Indication: DEPRESSION
     Dosage: 200 MG - 600 MG
     Route: 048
     Dates: start: 20000801, end: 20060501
  3. RISPERDAL [Concomitant]
     Dates: start: 19990630, end: 19990727
  4. ZYPREXA [Concomitant]
     Dates: start: 20000829, end: 20020703

REACTIONS (4)
  - MENTAL DISORDER [None]
  - NUTRITIONAL CONDITION ABNORMAL [None]
  - PANCREATIC NEOPLASM [None]
  - PANCREATITIS ACUTE [None]
